FAERS Safety Report 10637852 (Version 1)
Quarter: 2014Q4

REPORT INFORMATION
  Report Type: Spontaneous
  Country: IN (occurrence: IN)
  Receive Date: 20141208
  Receipt Date: 20141208
  Transmission Date: 20150529
  Serious: Yes (Hospitalization)
  Sender: FDA-Public Use
  Company Number: IN-MYLANLABS-2014M1013134

PATIENT

DRUGS (2)
  1. ALPRAZOLAM. [Suspect]
     Active Substance: ALPRAZOLAM
     Dosage: 0.5 MG ON AND OFF, 10 TABLETS OF 0.5 MG/DAY
     Route: 048
  2. ALPRAZOLAM. [Interacting]
     Active Substance: ALPRAZOLAM
     Dosage: RESTARTED AT 5MG/DAY
     Route: 048

REACTIONS (4)
  - Catatonia [Recovered/Resolved]
  - Drug dependence [Recovered/Resolved]
  - Drug interaction [Recovered/Resolved]
  - Substance-induced psychotic disorder [Recovered/Resolved]
